FAERS Safety Report 5214877-3 (Version None)
Quarter: 2007Q1

REPORT INFORMATION
  Report Type: 
  Country: None (occurrence: None)
  Receive Date: 20070122
  Receipt Date: 20070122
  Transmission Date: 20070707
  Serious: Yes (Life-Threatening, Hospitalization)
  Sender: FDA-Public Use
  Company Number: None

PATIENT
  Age: 40 Year
  Sex: Female
  Weight: 72.5755 kg

DRUGS (1)
  1. BACTRIM [Suspect]
     Indication: URINARY TRACT INFECTION
     Dosage: 1 TABLET TWICE A DAY
     Dates: start: 20061216, end: 20061226

REACTIONS (13)
  - ABASIA [None]
  - AGEUSIA [None]
  - BLISTER [None]
  - BODY TEMPERATURE INCREASED [None]
  - DRUG HYPERSENSITIVITY [None]
  - FUNGAL INFECTION [None]
  - INFLUENZA LIKE ILLNESS [None]
  - MALAISE [None]
  - ODYNOPHAGIA [None]
  - ORAL INTAKE REDUCED [None]
  - RASH [None]
  - STOMATITIS [None]
  - SWELLING [None]
